FAERS Safety Report 5107046-9 (Version None)
Quarter: 2006Q3

REPORT INFORMATION
  Report Type: 
  Country: None (occurrence: None)
  Receive Date: 20060913
  Receipt Date: 20060821
  Transmission Date: 20061208
  Serious: Yes (Hospitalization, Other)
  Sender: FDA-Public Use
  Company Number: 2006RR-03614

PATIENT
  Age: 42 Year
  Sex: Male

DRUGS (4)
  1. ZIDOVUDINE [Suspect]
  2. INDINAVIR SULPHATE [Suspect]
  3. LAMIVUDINE [Suspect]
  4. ABACAVIR [Suspect]

REACTIONS (5)
  - FATIGUE [None]
  - INFECTION IN AN IMMUNOCOMPROMISED HOST [None]
  - LIPODYSTROPHY ACQUIRED [None]
  - MENINGITIS ASEPTIC [None]
  - ORAL CANDIDIASIS [None]
